FAERS Safety Report 5758901-8 (Version None)
Quarter: 2008Q2

REPORT INFORMATION
  Report Type: 
  Country: None (occurrence: None)
  Receive Date: 20080604
  Receipt Date: 20080529
  Transmission Date: 20081010
  Serious: Yes (Death, Other)
  Sender: FDA-Public Use
  Company Number: PHBS2007JP14692

PATIENT
  Sex: Female
  Weight: 49 kg

DRUGS (10)
  1. ZOMETA [Suspect]
     Indication: METASTASES TO BONE
     Dosage: 4 MG, UNK
     Route: 042
     Dates: start: 20061019, end: 20070510
  2. AREDIA [Suspect]
     Indication: METASTASES TO BONE
     Dosage: UNK, UNK
     Route: 042
     Dates: start: 20010101, end: 20030101
  3. AREDIA [Suspect]
     Dosage: UNK
     Dates: end: 20050101
  4. ALENDRONATE SODIUM [Suspect]
     Dosage: 10 MG, QD
     Route: 042
     Dates: start: 20030529, end: 20060518
  5. HYSRON [Concomitant]
  6. ARIMIDEX [Concomitant]
  7. FEMARA [Concomitant]
     Route: 048
     Dates: start: 20070101
  8. ADRIACIN [Concomitant]
     Indication: BREAST CANCER RECURRENT
     Dosage: 80 MG/DAY
     Route: 042
     Dates: start: 20060523, end: 20060101
  9. ENDOXAN [Concomitant]
     Indication: BREAST CANCER RECURRENT
     Dosage: 600 MG/DAY
     Route: 042
     Dates: start: 20060523, end: 20061130
  10. MEDROXYPROGESTERONE [Concomitant]

REACTIONS (12)
  - ALANINE AMINOTRANSFERASE INCREASED [None]
  - ASPARTATE AMINOTRANSFERASE INCREASED [None]
  - BLOOD LACTATE DEHYDROGENASE INCREASED [None]
  - COUGH [None]
  - HEPATIC FAILURE [None]
  - METASTASES TO LYMPH NODES [None]
  - MYELITIS [None]
  - NUCLEAR MAGNETIC RESONANCE IMAGING ABNORMAL [None]
  - OSTEOMYELITIS [None]
  - OSTEONECROSIS [None]
  - PERIODONTAL DISEASE [None]
  - TOOTHACHE [None]
